FAERS Safety Report 6390942-2 (Version None)
Quarter: 2009Q4

REPORT INFORMATION
  Report Type: 
  Country: None (occurrence: None)
  Receive Date: 20091001
  Receipt Date: 20090603
  Transmission Date: 20100525
  Serious: No
  Sender: FDA-Public Use
  Company Number: 1000006615

PATIENT
  Age: 60 Year
  Sex: Male

DRUGS (5)
  1. BYSTOLIC [Suspect]
     Indication: HYPERTENSION
     Dosage: 10 MG (10 MG, 1 IN 1 D), ORAL
     Route: 048
     Dates: start: 20090225
  2. TEKTURNA [Concomitant]
  3. DILTIAZEM [Concomitant]
  4. AVANDIA [Concomitant]
  5. DIABETIC MEDICATION (NOS) [Concomitant]

REACTIONS (1)
  - AMNESIA [None]
